FAERS Safety Report 9104613 (Version 2)
Quarter: 2013Q2

REPORT INFORMATION
  Report Type: Spontaneous
  Country: JP (occurrence: JP)
  Receive Date: 20130219
  Receipt Date: 20130419
  Transmission Date: 20140414
  Serious: Yes (Other)
  Sender: FDA-Public Use
  Company Number: JP-SANOFI-AVENTIS-2013SA014456

PATIENT
  Age: 64 Year
  Sex: Female

DRUGS (42)
  1. FLUOROURACIL [Suspect]
     Indication: RECTAL CANCER
     Dosage: BOLUS
     Route: 040
     Dates: start: 20091104, end: 20091104
  2. FLUOROURACIL [Suspect]
     Indication: RECTAL CANCER
     Route: 041
     Dates: start: 20091104, end: 20091104
  3. FLUOROURACIL [Suspect]
     Indication: RECTAL CANCER
     Dosage: BOLUS
     Route: 040
     Dates: start: 20091209, end: 20091209
  4. FLUOROURACIL [Suspect]
     Indication: RECTAL CANCER
     Route: 041
     Dates: start: 20091209, end: 20091209
  5. FLUOROURACIL [Suspect]
     Indication: RECTAL CANCER
     Dosage: BOLUS
     Route: 040
     Dates: start: 20091225, end: 20091225
  6. FLUOROURACIL [Suspect]
     Indication: RECTAL CANCER
     Route: 041
     Dates: start: 20091225, end: 20091225
  7. FLUOROURACIL [Suspect]
     Indication: RECTAL CANCER
     Dosage: BOLUS
     Route: 040
     Dates: start: 20100305, end: 20100305
  8. FLUOROURACIL [Suspect]
     Indication: RECTAL CANCER
     Route: 041
     Dates: start: 20100305, end: 20100305
  9. FLUOROURACIL [Suspect]
     Indication: RECTAL CANCER
     Dosage: BOLUS
     Route: 040
     Dates: start: 20100323, end: 20100323
  10. FLUOROURACIL [Suspect]
     Indication: RECTAL CANCER
     Route: 041
     Dates: start: 20100323, end: 20100323
  11. FLUOROURACIL [Suspect]
     Indication: RECTAL CANCER
     Dosage: BOLUS
     Route: 040
     Dates: start: 20100412, end: 20100412
  12. FLUOROURACIL [Suspect]
     Indication: RECTAL CANCER
     Route: 041
     Dates: start: 20100412, end: 20100412
  13. FLUOROURACIL [Suspect]
     Indication: RECTAL CANCER
     Dosage: BOLUS
     Route: 040
     Dates: start: 20100426, end: 20100426
  14. FLUOROURACIL [Suspect]
     Indication: RECTAL CANCER
     Route: 041
     Dates: start: 20100426, end: 20100426
  15. FLUOROURACIL [Suspect]
     Indication: RECTAL CANCER
     Dosage: BOLUS
     Route: 040
     Dates: start: 20100517, end: 20100517
  16. FLUOROURACIL [Suspect]
     Indication: RECTAL CANCER
     Route: 041
     Dates: start: 20100517, end: 20100517
  17. FLUOROURACIL [Suspect]
     Indication: RECTAL CANCER
     Dosage: BOLUS
     Route: 040
     Dates: start: 20100607, end: 20100607
  18. FLUOROURACIL [Suspect]
     Indication: RECTAL CANCER
     Route: 041
     Dates: start: 20100607, end: 20100607
  19. FLUOROURACIL [Suspect]
     Indication: RECTAL CANCER
     Dosage: BOLUS
     Route: 040
     Dates: start: 20100628, end: 20100628
  20. FLUOROURACIL [Suspect]
     Indication: RECTAL CANCER
     Route: 041
     Dates: start: 20100628, end: 20100628
  21. FLUOROURACIL [Suspect]
     Indication: RECTAL CANCER
     Dosage: BOLUS
     Route: 040
     Dates: start: 20100726, end: 20100726
  22. FLUOROURACIL [Suspect]
     Indication: RECTAL CANCER
     Route: 041
     Dates: start: 20100726, end: 20100726
  23. FLUOROURACIL [Suspect]
     Indication: RECTAL CANCER
     Dosage: BOLUS
     Route: 040
     Dates: start: 20100816, end: 20100816
  24. FLUOROURACIL [Suspect]
     Indication: RECTAL CANCER
     Route: 041
     Dates: start: 20100816, end: 20100816
  25. FLUOROURACIL [Suspect]
     Indication: RECTAL CANCER
     Dosage: BOLUS
     Route: 040
     Dates: start: 20100829, end: 20100829
  26. FLUOROURACIL [Suspect]
     Indication: RECTAL CANCER
     Dosage: BOLUS
     Route: 041
     Dates: start: 20100829, end: 20100829
  27. OXALIPLATIN [Suspect]
     Indication: RECTAL CANCER
     Route: 041
     Dates: start: 20091104, end: 20091104
  28. OXALIPLATIN [Suspect]
     Indication: RECTAL CANCER
     Route: 041
     Dates: start: 20091209, end: 20091209
  29. OXALIPLATIN [Suspect]
     Indication: RECTAL CANCER
     Route: 041
     Dates: start: 20091225, end: 20091225
  30. OXALIPLATIN [Suspect]
     Indication: RECTAL CANCER
     Route: 041
     Dates: start: 20100305, end: 20100305
  31. OXALIPLATIN [Suspect]
     Indication: RECTAL CANCER
     Route: 041
     Dates: start: 20100323, end: 20100323
  32. OXALIPLATIN [Suspect]
     Indication: RECTAL CANCER
     Route: 041
     Dates: start: 20100412, end: 20100412
  33. OXALIPLATIN [Suspect]
     Indication: RECTAL CANCER
     Route: 041
     Dates: start: 20100426, end: 20100426
  34. OXALIPLATIN [Suspect]
     Indication: RECTAL CANCER
     Route: 041
     Dates: start: 20100517, end: 20100517
  35. OXALIPLATIN [Suspect]
     Indication: RECTAL CANCER
     Route: 041
     Dates: start: 20100607, end: 20100607
  36. OXALIPLATIN [Suspect]
     Indication: RECTAL CANCER
     Route: 041
     Dates: start: 20100628, end: 20100628
  37. OXALIPLATIN [Suspect]
     Indication: RECTAL CANCER
     Route: 041
     Dates: start: 20100726, end: 20100726
  38. OXALIPLATIN [Suspect]
     Indication: RECTAL CANCER
     Route: 041
     Dates: start: 20100816, end: 20100816
  39. OXALIPLATIN [Suspect]
     Indication: RECTAL CANCER
     Route: 041
     Dates: start: 20100829, end: 20100829
  40. CALCIUM LEVOFOLINATE [Concomitant]
     Dates: start: 20091104, end: 20100829
  41. GRANISETRON [Concomitant]
     Dates: start: 20091104, end: 20100829
  42. DEXAMETHASONE SODIUM PHOSPHATE [Concomitant]
     Dates: start: 20091104, end: 20100829

REACTIONS (4)
  - Non-alcoholic steatohepatitis [Not Recovered/Not Resolved]
  - Portal hypertension [Not Recovered/Not Resolved]
  - Platelet count decreased [Not Recovered/Not Resolved]
  - Splenomegaly [Unknown]
